FAERS Safety Report 17441521 (Version 1)
Quarter: 2020Q1

REPORT INFORMATION
  Report Type: Report from Study
  Country: None (occurrence: US)
  Receive Date: 20200220
  Receipt Date: 20200220
  Transmission Date: 20200409
  Serious: Yes (Hospitalization, Other)
  Sender: FDA-Public Use
  Company Number: US-ABBVIE-20P-163-3284474-00

PATIENT
  Age: 33 Year
  Sex: Female

DRUGS (1)
  1. RINVOQ [Suspect]
     Active Substance: UPADACITINIB
     Indication: RHEUMATOID ARTHRITIS
     Route: 048

REACTIONS (5)
  - Ureteral stent insertion [Unknown]
  - Urinary tract infection [Unknown]
  - Urinary retention [Unknown]
  - Nephrolithiasis [Not Recovered/Not Resolved]
  - Dysuria [Unknown]

NARRATIVE: CASE EVENT DATE: 20200206
